FAERS Safety Report 9279415 (Version 1)
Quarter: 2013Q2

REPORT INFORMATION
  Report Type: Spontaneous
  Country: IT (occurrence: IT)
  Receive Date: 20130508
  Receipt Date: 20130508
  Transmission Date: 20140414
  Serious: Yes (Hospitalization)
  Sender: FDA-Public Use
  Company Number: IT-009507513-1304ITA017676

PATIENT
  Age: 52 Year
  Sex: Female

DRUGS (4)
  1. REMERON [Suspect]
     Indication: SUICIDE ATTEMPT
     Dosage: TOTAL, 6 DOSE UNIT, QD
     Route: 048
     Dates: start: 20130402, end: 20130402
  2. RIVOTRIL [Suspect]
     Indication: SUICIDE ATTEMPT
     Dosage: ORAL DROP, TOTAL 1 DOSE (UNIT)
     Route: 048
     Dates: start: 20130402, end: 20130402
  3. XANAX [Suspect]
     Indication: SUICIDE ATTEMPT
     Dosage: 0.50 MG, QD
     Dates: start: 20130402, end: 20130402
  4. ANEXATE [Suspect]

REACTIONS (1)
  - Toxicity to various agents [Recovered/Resolved]
